FAERS Safety Report 6395823-6 (Version None)
Quarter: 2009Q4

REPORT INFORMATION
  Report Type: 
  Country: None (occurrence: None)
  Receive Date: 20091009
  Receipt Date: 20090721
  Transmission Date: 20100525
  Serious: No
  Sender: FDA-Public Use
  Company Number: A0793513A

PATIENT
  Sex: Female

DRUGS (1)
  1. TYKERB [Suspect]
     Indication: BREAST CANCER
     Dosage: 1250MG PER DAY
     Route: 048
     Dates: start: 20090618

REACTIONS (5)
  - DIARRHOEA [None]
  - LOCAL SWELLING [None]
  - NAUSEA [None]
  - RASH [None]
  - SKIN DISCOLOURATION [None]
